FAERS Safety Report 5284632-7 (Version None)
Quarter: 2007Q2

REPORT INFORMATION
  Report Type: 
  Country: None (occurrence: None)
  Receive Date: 20070403
  Receipt Date: 20070323
  Transmission Date: 20071010
  Serious: Yes (Death, Life-Threatening)
  Sender: FDA-Public Use
  Company Number: FR-ELI_LILLY_AND_COMPANY-FR200701006286

PATIENT
  Age: 51 Year
  Sex: Male
  Weight: 63 kg

DRUGS (6)
  1. XIGRIS [Suspect]
     Indication: SEPSIS
     Dosage: UNK, OTHER
     Route: 042
     Dates: start: 20070125, end: 20070126
  2. LASIX [Concomitant]
     Indication: SEPTIC SHOCK
     Route: 042
     Dates: start: 20070124, end: 20070127
  3. HYPNOVEL [Concomitant]
     Indication: SEPTIC SHOCK
     Route: 042
     Dates: start: 20070124, end: 20070126
  4. NIMBEX [Concomitant]
     Indication: SEPTIC SHOCK
     Route: 042
     Dates: start: 20070124, end: 20070126
  5. SUFENTA [Concomitant]
     Indication: SEPTIC SHOCK
     Route: 042
     Dates: start: 20070124, end: 20070126
  6. NORADRENALINE [Concomitant]
     Indication: SEPTIC SHOCK
     Route: 042
     Dates: start: 20070124, end: 20070127

REACTIONS (1)
  - CEREBRAL HAEMORRHAGE [None]
